FAERS Safety Report 10063754 (Version 1)
Quarter: 2014Q2

REPORT INFORMATION
  Report Type: Spontaneous
  Country: US (occurrence: US)
  Receive Date: 20140408
  Receipt Date: 20140408
  Transmission Date: 20141212
  Serious: Yes (Hospitalization)
  Sender: FDA-Public Use
  Company Number: US-ABBVIE-14P-163-1219378-00

PATIENT
  Sex: Female
  Weight: 56.75 kg

DRUGS (6)
  1. DEPAKOTE [Suspect]
     Indication: BIPOLAR DISORDER
     Dates: start: 2002, end: 2002
  2. DEPAKOTE [Suspect]
     Dates: start: 2006, end: 2006
  3. ZYPREXA [Suspect]
     Indication: BIPOLAR DISORDER
     Dates: start: 2002, end: 2002
  4. ABILIFY [Suspect]
     Indication: BIPOLAR DISORDER
     Dates: start: 2006
  5. PAIN PILL [Suspect]
     Indication: PAIN
  6. METFORMIN [Concomitant]
     Indication: TYPE 2 DIABETES MELLITUS

REACTIONS (4)
  - Mania [Recovered/Resolved]
  - Aphasia [Recovered/Resolved]
  - Alopecia [Recovered/Resolved]
  - Weight increased [Recovered/Resolved]
